FAERS Safety Report 18475368 (Version 41)
Quarter: 2024Q2

REPORT INFORMATION
  Report Type: Report from Study
  Country: CA (occurrence: CA)
  Receive Date: 20201106
  Receipt Date: 20240626
  Transmission Date: 20240715
  Serious: Yes (Hospitalization, Other)
  Sender: FDA-Public Use
  Company Number: CA-PVINTAKE-20200042029

PATIENT
  Age: 58 Year
  Sex: Female
  Weight: 94 kg

DRUGS (61)
  1. TEDUGLUTIDE [Suspect]
     Active Substance: TEDUGLUTIDE
     Indication: Short-bowel syndrome
     Dosage: 4.65 MILLIGRAM, QD
     Route: 065
     Dates: start: 20200310
  2. TEDUGLUTIDE [Suspect]
     Active Substance: TEDUGLUTIDE
     Indication: Short-bowel syndrome
     Dosage: 4.65 MILLIGRAM, QD
     Route: 065
     Dates: start: 20200310
  3. TEDUGLUTIDE [Suspect]
     Active Substance: TEDUGLUTIDE
     Indication: Short-bowel syndrome
     Dosage: 4.65 MILLIGRAM, QD
     Route: 065
     Dates: start: 20200310
  4. TEDUGLUTIDE [Suspect]
     Active Substance: TEDUGLUTIDE
     Indication: Short-bowel syndrome
     Dosage: 4.65 MILLIGRAM, QD
     Route: 065
     Dates: start: 20200310
  5. TEDUGLUTIDE [Suspect]
     Active Substance: TEDUGLUTIDE
     Dosage: 4.6 MILLIGRAM, QD
     Route: 058
     Dates: end: 20240106
  6. TEDUGLUTIDE [Suspect]
     Active Substance: TEDUGLUTIDE
     Dosage: 4.6 MILLIGRAM, QD
     Route: 058
     Dates: end: 20240106
  7. TEDUGLUTIDE [Suspect]
     Active Substance: TEDUGLUTIDE
     Dosage: 4.6 MILLIGRAM, QD
     Route: 058
     Dates: end: 20240106
  8. TEDUGLUTIDE [Suspect]
     Active Substance: TEDUGLUTIDE
     Dosage: 4.6 MILLIGRAM, QD
     Route: 058
     Dates: end: 20240106
  9. TEDUGLUTIDE [Suspect]
     Active Substance: TEDUGLUTIDE
     Dosage: 4.6 MILLIGRAM, QD
     Route: 058
     Dates: start: 20240117
  10. TEDUGLUTIDE [Suspect]
     Active Substance: TEDUGLUTIDE
     Dosage: 4.6 MILLIGRAM, QD
     Route: 058
     Dates: start: 20240117
  11. TEDUGLUTIDE [Suspect]
     Active Substance: TEDUGLUTIDE
     Dosage: 4.6 MILLIGRAM, QD
     Route: 058
     Dates: start: 20240117
  12. TEDUGLUTIDE [Suspect]
     Active Substance: TEDUGLUTIDE
     Dosage: 4.6 MILLIGRAM, QD
     Route: 058
     Dates: start: 20240117
  13. TEDUGLUTIDE [Suspect]
     Active Substance: TEDUGLUTIDE
     Dosage: 4.85 MILLIGRAM, QD
     Route: 065
  14. TEDUGLUTIDE [Suspect]
     Active Substance: TEDUGLUTIDE
     Dosage: 4.85 MILLIGRAM, QD
     Route: 065
  15. TEDUGLUTIDE [Suspect]
     Active Substance: TEDUGLUTIDE
     Dosage: 4.85 MILLIGRAM, QD
     Route: 065
  16. TEDUGLUTIDE [Suspect]
     Active Substance: TEDUGLUTIDE
     Dosage: 4.85 MILLIGRAM, QD
     Route: 065
  17. TEDUGLUTIDE [Suspect]
     Active Substance: TEDUGLUTIDE
     Dosage: 4.85 MILLIGRAM, QD
     Route: 058
  18. TEDUGLUTIDE [Suspect]
     Active Substance: TEDUGLUTIDE
     Dosage: 4.85 MILLIGRAM, QD
     Route: 058
  19. TEDUGLUTIDE [Suspect]
     Active Substance: TEDUGLUTIDE
     Dosage: 4.85 MILLIGRAM, QD
     Route: 058
  20. TEDUGLUTIDE [Suspect]
     Active Substance: TEDUGLUTIDE
     Dosage: 4.85 MILLIGRAM, QD
     Route: 058
  21. TEDUGLUTIDE [Suspect]
     Active Substance: TEDUGLUTIDE
     Dosage: 4.6 MILLIGRAM, QD
     Route: 050
  22. TEDUGLUTIDE [Suspect]
     Active Substance: TEDUGLUTIDE
     Dosage: 4.6 MILLIGRAM, QD
     Route: 050
  23. TEDUGLUTIDE [Suspect]
     Active Substance: TEDUGLUTIDE
     Dosage: 4.6 MILLIGRAM, QD
     Route: 050
  24. TEDUGLUTIDE [Suspect]
     Active Substance: TEDUGLUTIDE
     Dosage: 4.6 MILLIGRAM, QD
     Route: 050
  25. TEDUGLUTIDE [Suspect]
     Active Substance: TEDUGLUTIDE
     Dosage: 4.6 MILLIGRAM, QD
     Route: 058
  26. TEDUGLUTIDE [Suspect]
     Active Substance: TEDUGLUTIDE
     Dosage: 4.6 MILLIGRAM, QD
     Route: 058
  27. TEDUGLUTIDE [Suspect]
     Active Substance: TEDUGLUTIDE
     Dosage: 4.6 MILLIGRAM, QD
     Route: 058
  28. TEDUGLUTIDE [Suspect]
     Active Substance: TEDUGLUTIDE
     Dosage: 4.6 MILLIGRAM, QD
     Route: 058
  29. TORADOL [Concomitant]
     Active Substance: KETOROLAC TROMETHAMINE
     Indication: Sciatica
     Dosage: 10 MILLIGRAM, QD
     Route: 065
  30. NOVORAPID [Concomitant]
     Active Substance: INSULIN ASPART
     Indication: Product used for unknown indication
     Dosage: UNK, QID
     Route: 065
  31. TRESIBA [Concomitant]
     Active Substance: INSULIN DEGLUDEC
     Indication: Product used for unknown indication
     Dosage: 40 INTERNATIONAL UNIT
     Route: 065
  32. ASPIRIN [Concomitant]
     Active Substance: ASPIRIN
     Indication: Product used for unknown indication
     Dosage: 80 MILLIGRAM, QD
     Route: 065
  33. SYNTHROID [Concomitant]
     Active Substance: LEVOTHYROXINE SODIUM
     Indication: Product used for unknown indication
     Dosage: 37.5 MILLIGRAM
     Route: 065
  34. ATORVASTATIN [Concomitant]
     Active Substance: ATORVASTATIN
     Indication: Product used for unknown indication
     Dosage: 40 MILLIGRAM, QD
     Route: 065
  35. ATORVASTATIN [Concomitant]
     Active Substance: ATORVASTATIN
     Dosage: 20 MILLIGRAM, QD
     Route: 065
     Dates: start: 20200324
  36. METFORMIN [Concomitant]
     Active Substance: METFORMIN HYDROCHLORIDE
     Indication: Product used for unknown indication
     Dosage: 2 DOSAGE FORM, BID
     Route: 065
  37. METOPROLOL [Concomitant]
     Active Substance: METOPROLOL
     Indication: Product used for unknown indication
     Dosage: 12.5 MILLIGRAM, QD
     Route: 065
  38. VITAMIN A [Concomitant]
     Active Substance: VITAMIN A
     Indication: Product used for unknown indication
     Dosage: 20000 INTERNATIONAL UNIT
     Route: 065
  39. ISOTONIC [Concomitant]
     Indication: Product used for unknown indication
     Dosage: UNK
     Route: 065
  40. ATIVAN [Concomitant]
     Active Substance: LORAZEPAM
     Indication: Product used for unknown indication
     Dosage: 0.5 MILLIGRAM
     Route: 065
  41. CODEINE [Concomitant]
     Active Substance: CODEINE
     Indication: Arthritis
     Dosage: UNK
     Route: 065
     Dates: end: 20200629
  42. FLUCONAZOLE [Concomitant]
     Active Substance: FLUCONAZOLE
     Indication: Fungal infection
     Dosage: 3 DOSAGE FORM
     Route: 065
  43. ECTOSONE [Concomitant]
     Dosage: UNK
     Route: 061
     Dates: end: 20220106
  44. HERBALS\PLANTAGO OVATA SEED\PLANTAGO SEED [Concomitant]
     Active Substance: HERBALS\PLANTAGO OVATA SEED\PLANTAGO SEED
     Indication: Product used for unknown indication
     Dosage: 2.5 MILLILITER, QD
     Route: 065
     Dates: end: 20200531
  45. HERBALS\PLANTAGO OVATA SEED\PLANTAGO SEED [Concomitant]
     Active Substance: HERBALS\PLANTAGO OVATA SEED\PLANTAGO SEED
     Dosage: 0.5 DOSAGE FORM
     Route: 065
  46. LOPERAMIDE [Concomitant]
     Active Substance: LOPERAMIDE
     Indication: Product used for unknown indication
     Dosage: 2 DOSAGE FORM, TID
     Route: 065
     Dates: start: 20200707
  47. LOPERAMIDE [Concomitant]
     Active Substance: LOPERAMIDE
     Dosage: 2 MILLIGRAM, TID
     Route: 065
  48. LOPERAMIDE [Concomitant]
     Active Substance: LOPERAMIDE
     Dosage: 2 DOSAGE FORM, TID
     Route: 065
     Dates: start: 20150701, end: 20151001
  49. OCTREOTIDE ACETATE [Concomitant]
     Active Substance: OCTREOTIDE ACETATE
     Indication: Product used for unknown indication
     Dosage: 120 MILLIGRAM, TID
     Route: 058
  50. VITAMIN B [Concomitant]
     Active Substance: VITAMIN B
     Indication: Product used for unknown indication
     Dosage: UNK, MONTHLY
     Route: 050
  51. PANTOPRAZOLE [Concomitant]
     Active Substance: PANTOPRAZOLE
     Indication: Product used for unknown indication
     Dosage: 40 MILLIGRAM, BID
     Route: 065
  52. VITAMIN D [Concomitant]
     Active Substance: VITAMIN D NOS
     Indication: Product used for unknown indication
     Dosage: 50000 INTERNATIONAL UNIT, QOD
     Route: 065
  53. VITAMIN D [Concomitant]
     Active Substance: VITAMIN D NOS
     Dosage: 20000 INTERNATIONAL UNIT
     Route: 065
  54. VITAMIN D [Concomitant]
     Active Substance: VITAMIN D NOS
     Dosage: 15000 INTERNATIONAL UNIT, QOD
     Route: 065
  55. AMITRIPTYLINE [Concomitant]
     Active Substance: AMITRIPTYLINE
     Indication: Product used for unknown indication
     Dosage: 12.5 MILLIGRAM, QD
     Route: 065
  56. SALINE [Concomitant]
     Active Substance: SODIUM CHLORIDE
     Indication: Product used for unknown indication
     Dosage: 1000 MILLILITER
     Route: 042
     Dates: end: 20220106
  57. REMICADE [Concomitant]
     Active Substance: INFLIXIMAB
     Indication: Crohn^s disease
     Dosage: UNK
     Route: 065
  58. HUMIRA [Concomitant]
     Active Substance: ADALIMUMAB
     Indication: Crohn^s disease
     Dosage: UNK
     Route: 065
  59. MAGNESIUM [Concomitant]
     Active Substance: MAGNESIUM
     Indication: Product used for unknown indication
     Dosage: 3 GRAM, QD
     Route: 065
  60. IRBESARTAN [Concomitant]
     Active Substance: IRBESARTAN
     Indication: Product used for unknown indication
     Dosage: UNK
     Route: 065
  61. METAMUCIL [Concomitant]
     Active Substance: PLANTAGO SEED
     Dosage: 0.5 DOSAGE FORM, QD
     Route: 065
     Dates: end: 20200531

REACTIONS (64)
  - Muscle spasms [Recovered/Resolved]
  - Gastrointestinal polyp [Unknown]
  - Small intestinal obstruction [Recovering/Resolving]
  - Angina pectoris [Recovering/Resolving]
  - Haemorrhage urinary tract [Not Recovered/Not Resolved]
  - Infection [Not Recovered/Not Resolved]
  - Anal abscess [Recovering/Resolving]
  - Haematochezia [Recovering/Resolving]
  - Throat tightness [Unknown]
  - Blood pressure increased [Unknown]
  - Vitamin D decreased [Unknown]
  - Pancreatic disorder [Recovering/Resolving]
  - Stoma obstruction [Recovering/Resolving]
  - Blood glucose decreased [Unknown]
  - White blood cell count increased [Unknown]
  - Dehydration [Unknown]
  - Endocrine disorder [Unknown]
  - Weight fluctuation [Recovering/Resolving]
  - Eyelid ptosis [Unknown]
  - Fistula [Unknown]
  - Substance use [Unknown]
  - Weight decreased [Not Recovered/Not Resolved]
  - Tooth disorder [Unknown]
  - Stoma complication [Unknown]
  - Fatigue [Not Recovered/Not Resolved]
  - Vaginal discharge [Recovering/Resolving]
  - Vulvovaginal pain [Unknown]
  - Vulvovaginal discomfort [Unknown]
  - Crying [Unknown]
  - Peripheral swelling [Recovered/Resolved]
  - Eating disorder [Unknown]
  - Glycosylated haemoglobin increased [Unknown]
  - Pain in extremity [Recovered/Resolved]
  - Urinary tract infection [Unknown]
  - Obstruction [Recovered/Resolved]
  - Sciatica [Unknown]
  - Abnormal faeces [Not Recovered/Not Resolved]
  - Malaise [Not Recovered/Not Resolved]
  - Weight increased [Not Recovered/Not Resolved]
  - Faeces discoloured [Unknown]
  - Chills [Not Recovered/Not Resolved]
  - Fungal infection [Recovering/Resolving]
  - Gut fermentation syndrome [Recovering/Resolving]
  - Overgrowth bacterial [Recovered/Resolved]
  - Diarrhoea [Not Recovered/Not Resolved]
  - Gastrointestinal bacterial overgrowth [Recovering/Resolving]
  - Dry skin [Recovering/Resolving]
  - Drug ineffective [Not Recovered/Not Resolved]
  - Blood magnesium decreased [Unknown]
  - Vitamin D increased [Unknown]
  - Hyperhidrosis [Unknown]
  - Feeling abnormal [Recovering/Resolving]
  - Gastrointestinal pain [Recovered/Resolved]
  - Cardiac disorder [Not Recovered/Not Resolved]
  - Anxiety [Unknown]
  - Abdominal pain upper [Unknown]
  - Nausea [Unknown]
  - Flatulence [Unknown]
  - Abdominal pain [Not Recovered/Not Resolved]
  - Carpal tunnel syndrome [Not Recovered/Not Resolved]
  - Blood insulin decreased [Unknown]
  - Inappropriate schedule of product administration [Unknown]
  - Product dose omission issue [Unknown]
  - Incorrect dose administered [Unknown]

NARRATIVE: CASE EVENT DATE: 20200513
